FAERS Safety Report 18569063 (Version 1)
Quarter: 2020Q4

REPORT INFORMATION
  Report Type: Spontaneous
  Country: GR (occurrence: GR)
  Receive Date: 20201202
  Receipt Date: 20201202
  Transmission Date: 20210114
  Serious: Yes (Other)
  Sender: FDA-Public Use
  Company Number: GR-BAUSCH-BL-2020-034322

PATIENT
  Age: 52 Year
  Sex: Male

DRUGS (2)
  1. CLOMIPRAMINE [Concomitant]
     Active Substance: CLOMIPRAMINE
     Indication: TILT TABLE TEST
     Dosage: 5 MG OF CLOMIPRAMINE OVER 5 MINUTES (1 MG/MIN)
     Route: 042
  2. ATROPINE. [Suspect]
     Active Substance: ATROPINE
     Indication: ATRIAL FIBRILLATION
     Route: 042

REACTIONS (2)
  - Atrial fibrillation [Recovered/Resolved]
  - Condition aggravated [Recovered/Resolved]
